FAERS Safety Report 4738233-7 (Version None)
Quarter: 2005Q3

REPORT INFORMATION
  Report Type: 
  Country: None (occurrence: None)
  Receive Date: 20050809
  Receipt Date: 20050803
  Transmission Date: 20060218
  Serious: Yes (Life-Threatening, Other)
  Sender: FDA-Public Use
  Company Number: 200516080US

PATIENT
  Sex: Female
  Weight: 81.1 kg

DRUGS (5)
  1. KETEK [Suspect]
     Indication: PHARYNGITIS STREPTOCOCCAL
     Dosage: DOSE: 400 X 2 TAB
     Route: 048
     Dates: start: 20050728, end: 20050801
  2. PROZAC [Concomitant]
  3. WELLBUTRIN [Concomitant]
  4. TYLENOL (CAPLET) [Concomitant]
     Dosage: DOSE: UNK
  5. BIRTH CONTROL PILL NOS [Concomitant]
     Dosage: DOSE: UNK

REACTIONS (9)
  - CRYING [None]
  - DEPRESSED MOOD [None]
  - DEPRESSION [None]
  - DRUG INTERACTION [None]
  - FEELING ABNORMAL [None]
  - HYPERVENTILATION [None]
  - PANIC ATTACK [None]
  - SOMNOLENCE [None]
  - SUICIDAL IDEATION [None]
